FAERS Safety Report 10033591 (Version 2)
Quarter: 2014Q2

REPORT INFORMATION
  Report Type: Spontaneous
  Country: US (occurrence: US)
  Receive Date: 20140325
  Receipt Date: 20140414
  Transmission Date: 20141212
  Serious: No
  Sender: FDA-Public Use
  Company Number: US-BIOGENIDEC-2014BI026254

PATIENT
  Age: 50 Year
  Sex: Female

DRUGS (12)
  1. TECFIDERA [Suspect]
     Indication: MULTIPLE SCLEROSIS
     Route: 048
  2. TECFIDERA [Suspect]
     Indication: MULTIPLE SCLEROSIS
     Dates: end: 20140312
  3. ACETAMINOPHEN [Concomitant]
  4. CLONAZEPAM [Concomitant]
  5. CYMBALTA [Concomitant]
  6. FOLIC ACID [Concomitant]
  7. GENERESS FE [Concomitant]
  8. LEVOTHYROXINE SODIUM [Concomitant]
  9. METHOTREXATE SODIUM [Concomitant]
  10. TIZANIDINE HCL [Concomitant]
  11. TOPIRAMATE [Concomitant]
  12. VICODIN ES [Concomitant]

REACTIONS (4)
  - Gastrointestinal disorder [Unknown]
  - Diarrhoea [Recovered/Resolved]
  - Vomiting [Recovered/Resolved]
  - Migraine [Recovered/Resolved]
